FAERS Safety Report 8708283 (Version 2)
Quarter: 2013Q4

REPORT INFORMATION
  Report Type: Spontaneous
  Country: US (occurrence: US)
  Receive Date: 20120806
  Receipt Date: 20131101
  Transmission Date: 20140711
  Serious: No
  Sender: FDA-Public Use
  Company Number: US-009507513-1207USA011516

PATIENT
  Age: 58 Year
  Sex: Female

DRUGS (2)
  1. ASMANEX TWISTHALER [Suspect]
     Indication: ASTHMA
     Dosage: 220 MICROGRAM, BID
     Dates: start: 201207
  2. VENTOLIN (ALBUTEROL SULFATE) [Concomitant]

REACTIONS (1)
  - Visual impairment [Not Recovered/Not Resolved]
